FAERS Safety Report 25206752 (Version 1)
Quarter: 2025Q2

REPORT INFORMATION
  Report Type: Report from Study
  Country: KR (occurrence: KR)
  Receive Date: 20250417
  Receipt Date: 20250417
  Transmission Date: 20250717
  Serious: Yes (Hospitalization, Other)
  Sender: ASTELLAS
  Company Number: KR-ASTELLAS-2025-AER-020262

PATIENT
  Age: 59 Year
  Sex: Male
  Weight: 59.4 kg

DRUGS (11)
  1. ERLOTINIB [Suspect]
     Active Substance: ERLOTINIB
     Indication: Head and neck cancer
     Route: 048
     Dates: start: 20250228
  2. BEVACIZUMAB [Suspect]
     Active Substance: BEVACIZUMAB
     Indication: Head and neck cancer
     Route: 042
     Dates: start: 20250228
  3. Dulackhan-easy [Concomitant]
     Indication: Product used for unknown indication
     Route: 065
     Dates: start: 20250206, end: 20250317
  4. Dulackhan-easy [Concomitant]
  5. MOSAPRIDE CITRATE [Concomitant]
     Active Substance: MOSAPRIDE CITRATE
     Indication: Product used for unknown indication
     Route: 065
     Dates: start: 20250206, end: 20250317
  6. Godex [Concomitant]
     Indication: Product used for unknown indication
     Route: 065
     Dates: start: 20250206, end: 20250317
  7. K-CAB [Concomitant]
     Indication: Product used for unknown indication
     Route: 065
     Dates: start: 20250206, end: 20250317
  8. MUCOSTA SR [Concomitant]
     Indication: Product used for unknown indication
     Route: 065
     Dates: start: 20250206, end: 20250317
  9. NORZYME [Concomitant]
     Indication: Product used for unknown indication
     Route: 065
     Dates: start: 20250206, end: 20250317
  10. ULTRACET [Concomitant]
     Active Substance: ACETAMINOPHEN\TRAMADOL HYDROCHLORIDE
     Indication: Product used for unknown indication
     Route: 065
     Dates: start: 20250206, end: 20250317
  11. URSODIOL [Concomitant]
     Active Substance: URSODIOL
     Indication: Product used for unknown indication
     Route: 065
     Dates: start: 20250206, end: 20250317

REACTIONS (1)
  - Abdominal pain upper [Recovered/Resolved]

NARRATIVE: CASE EVENT DATE: 20250315
